FAERS Safety Report 10641275 (Version 3)
Quarter: 2015Q1

REPORT INFORMATION
  Report Type: Spontaneous
  Country: FR (occurrence: FR)
  Receive Date: 20141209
  Receipt Date: 20150115
  Transmission Date: 20150720
  Serious: Yes (Hospitalization, Other)
  Sender: FDA-Public Use
  Company Number: FR-BAYER-2014-180494

PATIENT
  Age: 42 Year
  Sex: Female

DRUGS (1)
  1. MIRENA [Suspect]
     Active Substance: LEVONORGESTREL
     Dosage: 20 MCG/24HR, CONT
     Route: 015
     Dates: start: 201406, end: 20140926

REACTIONS (5)
  - Hospitalisation [None]
  - Procedural pain [None]
  - Device physical property issue [None]
  - Genital haemorrhage [None]
  - Device difficult to use [None]

NARRATIVE: CASE EVENT DATE: 2014
